FAERS Safety Report 5684808-0 (Version None)
Quarter: 2008Q1

REPORT INFORMATION
  Report Type: 
  Country: None (occurrence: None)
  Receive Date: 20080328
  Receipt Date: 20071004
  Transmission Date: 20080703
  Serious: Yes (Hospitalization)
  Sender: FDA-Public Use
  Company Number: US-BRISTOL-MYERS SQUIBB COMPANY-13929971

PATIENT
  Sex: Male

DRUGS (6)
  1. ERBITUX [Suspect]
     Indication: NEOPLASM MALIGNANT
     Route: 042
     Dates: start: 20071004, end: 20071004
  2. BENADRYL [Concomitant]
     Route: 042
     Dates: start: 20071004, end: 20071004
  3. DECADRON [Concomitant]
     Route: 048
     Dates: start: 20071004, end: 20071004
  4. TYLENOL (CAPLET) [Concomitant]
     Route: 048
     Dates: start: 20071004, end: 20071004
  5. COMPAZINE [Concomitant]
     Dates: start: 20071004, end: 20071004
  6. ALBUTEROL [Concomitant]
     Indication: PREMEDICATION
     Route: 055
     Dates: start: 20071004

REACTIONS (4)
  - BLOOD PRESSURE DECREASED [None]
  - DYSPNOEA [None]
  - OXYGEN SATURATION DECREASED [None]
  - RASH [None]
